FAERS Safety Report 11909787 (Version 1)
Quarter: 2016Q1

REPORT INFORMATION
  Report Type: Spontaneous
  Country: US (occurrence: None)
  Receive Date: 20160111
  Receipt Date: 20160111
  Transmission Date: 20160526
  Serious: No
  Sender: FDA-Public Use
  Company Number: None

PATIENT
  Age: 63 Year
  Sex: Female

DRUGS (6)
  1. AMOXICILLIN. [Concomitant]
     Active Substance: AMOXICILLIN
  2. PANTOPRAZOLE [Concomitant]
     Active Substance: PANTOPRAZOLE SODIUM
  3. LOPERAMIDE [Concomitant]
     Active Substance: LOPERAMIDE
  4. RANITIDINE [Concomitant]
     Active Substance: RANITIDINE\RANITIDINE HYDROCHLORIDE
  5. TEMAZOLAMIDE [Suspect]
     Active Substance: TEMOZOLOMIDE
     Indication: GASTROINTESTINAL CARCINOMA
     Route: 048
     Dates: start: 20151013, end: 20160107
  6. CAPECITABINE. [Suspect]
     Active Substance: CAPECITABINE
     Indication: GASTROINTESTINAL CARCINOMA
     Dosage: 500MG 3AM2PM PO
     Route: 048
     Dates: start: 20151013, end: 20160107

REACTIONS (1)
  - Disease progression [None]

NARRATIVE: CASE EVENT DATE: 20160107
